FAERS Safety Report 12253853 (Version 1)
Quarter: 2016Q2

REPORT INFORMATION
  Report Type: Report from Study
  Country: BR (occurrence: BR)
  Receive Date: 20160411
  Receipt Date: 20160411
  Transmission Date: 20160815
  Serious: Yes (Other)
  Sender: FDA-Public Use
  Company Number: BR-JNJFOC-20160405611

PATIENT
  Sex: Female

DRUGS (2)
  1. SIMPONI [Suspect]
     Active Substance: GOLIMUMAB
     Indication: RHEUMATOID ARTHRITIS
     Route: 058
     Dates: start: 20160109, end: 20160206
  2. ISONIAZID. [Concomitant]
     Active Substance: ISONIAZID
     Route: 065

REACTIONS (7)
  - Latent tuberculosis [Unknown]
  - Somnolence [Unknown]
  - Bedridden [Unknown]
  - Asthenia [Unknown]
  - Drug ineffective [Unknown]
  - Pain [Unknown]
  - Fatigue [Unknown]
